FAERS Safety Report 5303017-8 (Version None)
Quarter: 2007Q2

REPORT INFORMATION
  Report Type: 
  Country: None (occurrence: None)
  Receive Date: 20070413
  Receipt Date: 20070329
  Transmission Date: 20071010
  Serious: Yes (Hospitalization)
  Sender: FDA-Public Use
  Company Number: 07-000705

PATIENT
  Age: 56 Year
  Sex: Female
  Weight: 71.7 kg

DRUGS (9)
  1. FEMRING [Suspect]
     Indication: VULVOVAGINAL DRYNESS
     Dosage: 0.05 MG, QD; VAGINAL
     Route: 067
     Dates: start: 20020101
  2. SYNTHROID [Concomitant]
  3. DIOVAN HCT [Concomitant]
  4. PREVACID [Concomitant]
  5. NEXIUM [Concomitant]
  6. MULTIVITAMIN [Concomitant]
  7. FISH OIL (FISH OIL) [Concomitant]
  8. POTASSIUM (POTASSIUM) [Concomitant]
  9. CALCIUM (CALCIUM) [Concomitant]

REACTIONS (7)
  - ABDOMINAL PAIN [None]
  - DYSPNOEA [None]
  - HIATUS HERNIA [None]
  - MEDICAL DEVICE COMPLICATION [None]
  - OVARIAN CYST [None]
  - PROCEDURAL PAIN [None]
  - THYROID DISORDER [None]
